FAERS Safety Report 17987981 (Version 1)
Quarter: 2020Q3

REPORT INFORMATION
  Report Type: Spontaneous
  Country: US (occurrence: US)
  Receive Date: 20200706
  Receipt Date: 20200706
  Transmission Date: 20201103
  Serious: No
  Sender: FDA-Public Use
  Company Number: None

PATIENT
  Age: 31 Year
  Sex: Female

DRUGS (3)
  1. TRIKAFTA [Suspect]
     Active Substance: ELEXACAFTOR\IVACAFTOR\TEZACAFTOR
  2. COLISTIMETHATE [Suspect]
     Active Substance: COLISTIMETHATE SODIUM
     Route: 048
  3. PULMOZYME [Suspect]
     Active Substance: DORNASE ALFA
     Route: 048

REACTIONS (3)
  - Therapy interrupted [None]
  - Liver disorder [None]
  - Renal disorder [None]

NARRATIVE: CASE EVENT DATE: 20200701
